FAERS Safety Report 25254836 (Version 3)
Quarter: 2025Q2

REPORT INFORMATION
  Report Type: Other
  Country: US (occurrence: US)
  Receive Date: 20250430
  Receipt Date: 20250618
  Transmission Date: 20250717
  Serious: Yes (Hospitalization)
  Sender: TRAVERE THERAPEUTICS
  Company Number: US-TRAVERE-2025TVT00478

PATIENT
  Age: 64 Year
  Sex: Male

DRUGS (2)
  1. FILSPARI [Suspect]
     Active Substance: SPARSENTAN
     Indication: IgA nephropathy
     Route: 048
  2. FILSPARI [Suspect]
     Active Substance: SPARSENTAN
     Dosage: 200MG TABLETS TAKE 2 TABS DAILY
     Route: 048
     Dates: start: 20250311, end: 20250422

REACTIONS (15)
  - Cardiac failure congestive [Unknown]
  - Fluid retention [Unknown]
  - Back pain [None]
  - Muscle spasms [None]
  - Cough [None]
  - Arthralgia [Unknown]
  - Pain in extremity [Unknown]
  - Fatigue [Unknown]
  - Feeling abnormal [Unknown]
  - Productive cough [Unknown]
  - Haemoptysis [Unknown]
  - Dyspnoea [Unknown]
  - Muscular weakness [Unknown]
  - Infection [Unknown]
  - Asthenia [Unknown]
